FAERS Safety Report 9900998 (Version 1)
Quarter: 2014Q1

REPORT INFORMATION
  Report Type: Spontaneous
  Country: US (occurrence: US)
  Receive Date: 20140217
  Receipt Date: 20140217
  Transmission Date: 20141002
  Serious: No
  Sender: FDA-Public Use
  Company Number: US-ABBVIE-13P-163-1071609-00

PATIENT
  Sex: Male
  Weight: 78.54 kg

DRUGS (4)
  1. SIMCOR 1000/20 [Suspect]
     Indication: BLOOD CHOLESTEROL INCREASED
     Dosage: 1000/20
     Dates: start: 201203
  2. ASPIRIN [Concomitant]
     Indication: CARDIAC DISORDER
  3. VITAMIN D [Concomitant]
     Indication: SUPPLEMENTATION THERAPY
  4. FISH OIL [Concomitant]
     Indication: SUPPLEMENTATION THERAPY

REACTIONS (2)
  - Medication residue present [Not Recovered/Not Resolved]
  - Medication residue present [Not Recovered/Not Resolved]
